FAERS Safety Report 8665285 (Version 2)
Quarter: 2012Q4

REPORT INFORMATION
  Report Type: 
  Country: US (occurrence: US)
  Receive Date: 20120716
  Receipt Date: 20120907
  Transmission Date: 20130627
  Serious: Yes (Death)
  Sender: FDA-Public Use
  Company Number: US-CELGENEUS-163-21660-12071162

PATIENT
  Age: 52 Year
  Sex: Male

DRUGS (1)
  1. ABRAXANE [Suspect]
     Indication: PANCREATIC CANCER METASTATIC
     Dosage: 180 Milligram
     Route: 041
     Dates: start: 20120516, end: 20120530

REACTIONS (1)
  - Pancreatic carcinoma metastatic [Fatal]
